FAERS Safety Report 4589651-1 (Version None)
Quarter: 2005Q1

REPORT INFORMATION
  Report Type: 
  Country: None (occurrence: None)
  Receive Date: 20050217
  Receipt Date: 20050119
  Transmission Date: 20050727
  Serious: Yes (Death, Life-Threatening)
  Sender: FDA-Public Use
  Company Number: 2004JP002261

PATIENT
  Age: 57 Year
  Sex: Male

DRUGS (4)
  1. PROGRAF [Suspect]
     Indication: BONE MARROW TRANSPLANT
     Dates: start: 20040501
  2. METHOTREXATE [Concomitant]
  3. FLUDARABINE PHOSPHATE [Concomitant]
  4. BUSULFAN [Concomitant]

REACTIONS (11)
  - ANORECTAL DISORDER [None]
  - BLADDER DISORDER [None]
  - CELLULITIS STAPHYLOCOCCAL [None]
  - EXTRADURAL ABSCESS [None]
  - GRAFT VERSUS HOST DISEASE [None]
  - HEADACHE [None]
  - MONOPLEGIA [None]
  - MULTI-ORGAN FAILURE [None]
  - NECK PAIN [None]
  - PARALYSIS [None]
  - SEPSIS [None]
